FAERS Safety Report 4804017-4 (Version None)
Quarter: 2005Q4

REPORT INFORMATION
  Report Type: 
  Country: None (occurrence: None)
  Receive Date: 20051014
  Receipt Date: 20050930
  Transmission Date: 20060501
  Serious: Yes (Other)
  Sender: FDA-Public Use
  Company Number: 2002-04590

PATIENT
  Age: 40 Year
  Sex: Female
  Weight: 38.3289 kg

DRUGS (5)
  1. VIREAD [Suspect]
     Indication: HIV INFECTION
     Dosage: 300 MG, ONCE A DAY, ORAL
     Route: 048
     Dates: start: 20011210, end: 20020401
  2. VIDEX [Suspect]
     Indication: HIV INFECTION
     Dosage: 400 MG, ONCE A DAY, ORAL
     Route: 048
     Dates: start: 20010214, end: 20020401
  3. EPIVIR [Concomitant]
  4. KALETRA [Concomitant]
  5. RESCRIPTOR [Concomitant]

REACTIONS (7)
  - BLOOD TRIGLYCERIDES INCREASED [None]
  - CHOLELITHIASIS [None]
  - DRUG INTERACTION [None]
  - DRUG TOXICITY [None]
  - HYDRONEPHROSIS [None]
  - PANCREATITIS [None]
  - WEIGHT DECREASED [None]
